FAERS Safety Report 4374865-6 (Version None)
Quarter: 2004Q2

REPORT INFORMATION
  Report Type: 
  Country: None (occurrence: None)
  Receive Date: 20040604
  Receipt Date: 20040519
  Transmission Date: 20050107
  Serious: Yes (Disabling)
  Sender: FDA-Public Use
  Company Number: 8006362

PATIENT
  Age: 61 Year
  Sex: Female
  Weight: 79 kg

DRUGS (3)
  1. KEPPRA [Suspect]
     Dates: start: 20040409, end: 20040401
  2. KEPPRA [Suspect]
     Dosage: 500 MG 2/D PO
     Route: 048
     Dates: start: 20040423
  3. TRILEPTAL [Concomitant]

REACTIONS (9)
  - AGGRESSION [None]
  - ANOREXIA [None]
  - DEPERSONALISATION [None]
  - HALLUCINATION, VISUAL [None]
  - HOSTILITY [None]
  - IRRITABILITY [None]
  - PARTIAL SEIZURES [None]
  - RESTLESSNESS [None]
  - WEIGHT DECREASED [None]
